FAERS Safety Report 5076821-1 (Version None)
Quarter: 2006Q3

REPORT INFORMATION
  Report Type: 
  Country: None (occurrence: None)
  Receive Date: 20060807
  Receipt Date: 20060720
  Transmission Date: 20061208
  Serious: Yes (Other)
  Sender: FDA-Public Use
  Company Number: US200606000093

PATIENT
  Sex: Male
  Weight: 128.3 kg

DRUGS (3)
  1. ZYPREXA [Suspect]
     Dosage: 20 MG
     Dates: start: 20000701
  2. RISPERIDONE [Concomitant]
  3. PAXIL [Concomitant]

REACTIONS (2)
  - CORONARY ARTERY BYPASS [None]
  - DIABETES MELLITUS [None]
